FAERS Safety Report 8920428 (Version 1)
Quarter: 2012Q4

REPORT INFORMATION
  Report Type: 
  Country: US (occurrence: US)
  Receive Date: 20121122
  Receipt Date: 20121122
  Transmission Date: 20130627
  Serious: Yes (Other)
  Sender: FDA-Public Use
  Company Number: CHPA2012US023513

PATIENT
  Age: 71 Year
  Sex: Female

DRUGS (3)
  1. DESENEX [Suspect]
     Indication: HYPERHIDROSIS
     Dosage: UNK, ONCE A DAY
     Route: 061
     Dates: start: 1987
  2. DESENEX [Suspect]
     Indication: HYPERHIDROSIS
     Dosage: Unk, ONCE A DAY
     Route: 061
     Dates: start: 1987, end: 201210
  3. GOLD BOND [Concomitant]
     Dosage: Unk, Unk

REACTIONS (3)
  - Type 2 diabetes mellitus [Recovered/Resolved]
  - Off label use [Unknown]
  - Wrong technique in drug usage process [Unknown]
